FAERS Safety Report 25211386 (Version 1)
Quarter: 2025Q2

REPORT INFORMATION
  Report Type: Spontaneous
  Country: CA (occurrence: CA)
  Receive Date: 20250417
  Receipt Date: 20250417
  Transmission Date: 20250717
  Serious: Yes (Hospitalization, Other)
  Sender: UNITED THERAPEUTICS
  Company Number: CA-UNITED THERAPEUTICS-UNT-2025-012227

PATIENT

DRUGS (1)
  1. REMODULIN [Suspect]
     Active Substance: TREPROSTINIL
     Indication: Pulmonary arterial hypertension

REACTIONS (4)
  - Raynaud^s phenomenon [Unknown]
  - Oedema peripheral [Unknown]
  - Dyspnoea [Unknown]
  - Lethargy [Unknown]
